FAERS Safety Report 5793272-2 (Version None)
Quarter: 2008Q2

REPORT INFORMATION
  Report Type: 
  Country: None (occurrence: None)
  Receive Date: 20080626
  Receipt Date: 20080626
  Transmission Date: 20081010
  Serious: Yes (Hospitalization)
  Sender: FDA-Public Use
  Company Number: None

PATIENT
  Age: 69 Year
  Sex: Female
  Weight: 27.7148 kg

DRUGS (12)
  1. REVLIMID [Suspect]
     Indication: MULTIPLE MYELOMA
     Dosage: 15 MGY DAILY FOR 28 DAYS PO, 21ST DAY OUT OF 28
     Route: 048
  2. DEXAMETHASONE [Concomitant]
  3. WARFARIN SODIUM [Concomitant]
  4. CITALOPRAM HYDROBROMIDE [Concomitant]
  5. COMBIVENT [Concomitant]
  6. HYDROCHLOROTHIAZIDE [Concomitant]
  7. LISINOPRIL [Concomitant]
  8. DIAZEPAM [Concomitant]
  9. REQUIP [Concomitant]
  10. PREDNISOLONE [Concomitant]
  11. TRAMADOL HCL [Concomitant]
  12. DOCUSATE [Concomitant]

REACTIONS (4)
  - ACTIVATED PARTIAL THROMBOPLASTIN TIME PROLONGED [None]
  - ILIAC ARTERY EMBOLISM [None]
  - INTERNATIONAL NORMALISED RATIO DECREASED [None]
  - PROTHROMBIN TIME PROLONGED [None]
